FAERS Safety Report 21472635 (Version 1)
Quarter: 2022Q4

REPORT INFORMATION
  Report Type: Report from Study
  Country: IT (occurrence: IT)
  Receive Date: 20221018
  Receipt Date: 20221018
  Transmission Date: 20230113
  Serious: Yes (Other)
  Sender: FDA-Public Use
  Company Number: IT-MYLANLABS-2022M1115197

PATIENT
  Sex: Male
  Weight: 1.86 kg

DRUGS (6)
  1. CARBOPLATIN [Suspect]
     Active Substance: CARBOPLATIN
     Indication: Cervix carcinoma
     Dosage: UNK, Q21D,1 X 5AUC
     Route: 064
  2. CARBOPLATIN [Suspect]
     Active Substance: CARBOPLATIN
     Dosage: UNK , Q21D, 3 X 4AUC
     Route: 064
  3. PACLITAXEL [Suspect]
     Active Substance: PACLITAXEL
     Indication: Cervix carcinoma
     Dosage: UNK, Q21D, 1 X 175 MG/MQ
     Route: 064
  4. PACLITAXEL [Suspect]
     Active Substance: PACLITAXEL
     Dosage: UNK, Q21D, 3 X 135 MG/MQ
     Route: 064
  5. BETAMETHASONE [Suspect]
     Active Substance: BETAMETHASONE
     Indication: Maternal therapy to enhance foetal lung maturity
     Dosage: 12 MILLIGRAM, 2 DOSES 24H APART
     Route: 064
  6. BETAMETHASONE [Suspect]
     Active Substance: BETAMETHASONE
     Indication: Prophylaxis

REACTIONS (2)
  - Foetal growth restriction [Unknown]
  - Foetal exposure during pregnancy [Recovered/Resolved]
